FAERS Safety Report 21639890 (Version 2)
Quarter: 2022Q4

REPORT INFORMATION
  Report Type: Report from Study
  Country: LU (occurrence: LU)
  Receive Date: 20221124
  Receipt Date: 20221129
  Transmission Date: 20230112
  Serious: Yes (Death)
  Sender: FDA-Public Use
  Company Number: LU-ABBVIE-4196101

PATIENT
  Sex: Female
  Weight: 74 kg

DRUGS (14)
  1. CARBIDOPA\LEVODOPA [Suspect]
     Active Substance: CARBIDOPA\LEVODOPA
     Indication: Parkinson^s disease
     Dosage: MD: 6.0 ML, CD: 2.1 ML/H, ED: 1.0 ML DURING 16 HOURS
     Route: 050
     Dates: start: 20210120, end: 20211025
  2. CARBIDOPA\LEVODOPA [Suspect]
     Active Substance: CARBIDOPA\LEVODOPA
     Dosage: MD: 7.0 ML, CD: 2.1 ML/H, ED: 1.0 ML DURING 16 HOURS?THE DRUG STOP DATE WAS 2022.
     Route: 050
     Dates: start: 20211025
  3. CARBIDOPA\LEVODOPA [Suspect]
     Active Substance: CARBIDOPA\LEVODOPA
     Dosage: THE DRUG START DATE WAS 2022.
     Route: 050
     Dates: end: 20221118
  4. CARBIDOPA\LEVODOPA [Suspect]
     Active Substance: CARBIDOPA\LEVODOPA
     Dosage: DRUG START DATE WAS 2022
     Route: 050
  5. CIRCU FLOW [Concomitant]
     Indication: Product used for unknown indication
     Dosage: FORM STRENGTH: 2 MILLIGRAM?AT 09.00, 12.00
     Route: 065
  6. CLOZAPINE [Concomitant]
     Active Substance: CLOZAPINE
     Indication: Product used for unknown indication
  7. CLOZAPINE [Concomitant]
     Active Substance: CLOZAPINE
     Indication: Product used for unknown indication
     Dosage: 0.5 TABLET
  8. CLOZAPINE [Concomitant]
     Active Substance: CLOZAPINE
     Indication: Product used for unknown indication
     Dosage: 0.5 TABLET?FORM STRENGTH: 25 UNKNOWN?AT 18.00
     Route: 065
  9. BENSERAZIDE\LEVODOPA [Concomitant]
     Active Substance: BENSERAZIDE\LEVODOPA
     Indication: Product used for unknown indication
     Dosage: FORM STRENGTH: 250 UNKNOWN?AT 09.00, 12.00, 16.00, 18.00
     Route: 065
  10. BENSERAZIDE\LEVODOPA [Concomitant]
     Active Substance: BENSERAZIDE\LEVODOPA
     Indication: Product used for unknown indication
     Dosage: FORM STRENGTH: 125 UNKNOWN?AT 22.30
     Route: 065
  11. REQUIP [Concomitant]
     Active Substance: ROPINIROLE HYDROCHLORIDE
     Indication: Product used for unknown indication
     Dosage: FORM STRENGTH: 6 MILLIGRAM?AT 08.00
     Route: 065
  12. COMTAN [Concomitant]
     Active Substance: ENTACAPONE
     Indication: Product used for unknown indication
     Dosage: FORM STRENGTH: 200 UNKNOWN?AT 18.00
     Route: 065
  13. GLUCOPHAGE [Concomitant]
     Active Substance: METFORMIN HYDROCHLORIDE
     Indication: Product used for unknown indication
     Dosage: FORM STRENGTH: 850 MILLIGRAM?AT 12.00
     Route: 065
  14. LIPITOR [Concomitant]
     Active Substance: ATORVASTATIN CALCIUM
     Indication: Product used for unknown indication
     Dosage: FORM STRENGTH: 20 UNKNOWN?AT 18.00

REACTIONS (11)
  - Death [Fatal]
  - Device issue [Unknown]
  - Mobility decreased [Unknown]
  - Fall [Unknown]
  - Device issue [Unknown]
  - Pyrexia [Unknown]
  - Off label use [Unknown]
  - Aphasia [Unknown]
  - Asthenia [Unknown]
  - Disorientation [Unknown]
  - Bone pain [Unknown]

NARRATIVE: CASE EVENT DATE: 20221107
